FAERS Safety Report 6051669-X (Version None)
Quarter: 2009Q1

REPORT INFORMATION
  Report Type: 
  Country: None (occurrence: None)
  Receive Date: 20090126
  Receipt Date: 20090120
  Transmission Date: 20090719
  Serious: Yes (Hospitalization, Other)
  Sender: FDA-Public Use
  Company Number: PHHO2008KR01082

PATIENT
  Sex: Male
  Weight: 88 kg

DRUGS (1)
  1. TASIGNA [Suspect]
     Indication: CHRONIC MYELOID LEUKAEMIA
     Dosage: 800MG DAILY
     Route: 048
     Dates: start: 20071218, end: 20071225

REACTIONS (5)
  - BLOOD CREATINE PHOSPHOKINASE MB ABNORMAL [None]
  - DYSPNOEA [None]
  - ELECTROCARDIOGRAM QT PROLONGED [None]
  - HYPERBILIRUBINAEMIA [None]
  - LEUKOCYTOSIS [None]
